FAERS Safety Report 9659991 (Version 1)
Quarter: 2013Q4

REPORT INFORMATION
  Report Type: Spontaneous
  Country: US (occurrence: US)
  Receive Date: 20131031
  Receipt Date: 20131031
  Transmission Date: 20140711
  Serious: No
  Sender: FDA-Public Use
  Company Number: US-ABBVIE-13P-163-1072749-00

PATIENT
  Age: 55 Year
  Sex: Male
  Weight: 94.43 kg

DRUGS (4)
  1. CLARITHROMYCIN [Suspect]
     Indication: VIRAL INFECTION
     Dates: start: 20130321, end: 20130321
  2. CLARITHROMYCIN [Suspect]
     Indication: COUGH
  3. CENTRUM [Concomitant]
     Indication: VITAMIN SUPPLEMENTATION
  4. FLONASE [Concomitant]
     Indication: SEASONAL ALLERGY

REACTIONS (8)
  - Dysuria [Recovered/Resolved]
  - Balance disorder [Recovered/Resolved]
  - Burning sensation [Recovered/Resolved]
  - Burning sensation [Recovered/Resolved]
  - Confusional state [Recovered/Resolved]
  - Dizziness [Not Recovered/Not Resolved]
  - Headache [Recovered/Resolved]
  - Dizziness [Recovered/Resolved]
